FAERS Safety Report 21124922 (Version 1)
Quarter: 2022Q3

REPORT INFORMATION
  Report Type: Spontaneous
  Country: US (occurrence: None)
  Receive Date: 20220724
  Receipt Date: 20220724
  Transmission Date: 20221027
  Serious: Yes (Life-Threatening, Other)
  Sender: FDA-Public Use
  Company Number: None

PATIENT
  Age: 56 Year
  Sex: Female
  Weight: 63.45 kg

DRUGS (4)
  1. PAXLOVID [Suspect]
     Active Substance: NIRMATRELVIR\RITONAVIR
     Indication: COVID-19
     Dates: start: 20220720, end: 20220722
  2. LOSARTAN [Concomitant]
     Active Substance: LOSARTAN
  3. Multivitamin [Concomitant]
  4. ZYRTEC [Concomitant]
     Active Substance: CETIRIZINE HYDROCHLORIDE

REACTIONS (13)
  - Hypersensitivity [None]
  - Nausea [None]
  - Dizziness [None]
  - Burning sensation [None]
  - Diarrhoea [None]
  - Vomiting [None]
  - Hypertension [None]
  - Neuralgia [None]
  - Tension [None]
  - Dyspnoea [None]
  - Ageusia [None]
  - Anosmia [None]
  - Altered state of consciousness [None]

NARRATIVE: CASE EVENT DATE: 20220722
